FAERS Safety Report 9409599 (Version 3)
Quarter: 2013Q3

REPORT INFORMATION
  Report Type: Spontaneous
  Country: US (occurrence: US)
  Receive Date: 20130424
  Receipt Date: 20130929
  Transmission Date: 20140515
  Serious: Yes (Other)
  Sender: FDA-Public Use
  Company Number: JPI-P-031041

PATIENT
  Age: 59 Year
  Sex: Female

DRUGS (5)
  1. XYREM [Suspect]
     Indication: CATAPLEXY
     Dosage: 6 GM (3GM, 2 IN 1D)
     Route: 048
     Dates: start: 20080125, end: 2008
  2. FLUTICASONE PROPIONATE (SPRAY (NOT INHALATION)) [Concomitant]
  3. CETIRIZINE [Concomitant]
  4. FLUOXETINE HYDROCHLORIDE [Concomitant]
  5. HYDROCODONE BITARTRATE AND ACETAMINOPHEN [Concomitant]

REACTIONS (17)
  - Concussion [None]
  - Fall [None]
  - Sudden onset of sleep [None]
  - Nausea [None]
  - Face injury [None]
  - Contusion [None]
  - Head injury [None]
  - Joint injury [None]
  - Balance disorder [None]
  - Automatic bladder [None]
  - Cystitis [None]
  - Pain [None]
  - Faecaloma [None]
  - Lip injury [None]
  - Headache [None]
  - Gastrointestinal pain [None]
  - Pain [None]
